FAERS Safety Report 5129139-2 (Version None)
Quarter: 2006Q4

REPORT INFORMATION
  Report Type: 
  Country: None (occurrence: None)
  Receive Date: 20061011
  Receipt Date: 20060921
  Transmission Date: 20070319
  Serious: Yes (Other)
  Sender: FDA-Public Use
  Company Number: SY200609000387

PATIENT
  Age: 53 Year
  Sex: Female

DRUGS (3)
  1. RALOXIFENE HCL [Suspect]
     Indication: OSTEOPOROSIS
     Dosage: 60 MG
     Dates: start: 20060826, end: 20060830
  2. BETA BLOCKING AGENTS [Concomitant]
  3. PROGYLUTON     (ESTRADIOL VALERATE, LEVONORGESTREL) [Concomitant]

REACTIONS (5)
  - ERYTHEMA [None]
  - PAIN OF SKIN [None]
  - SKIN HAEMORRHAGE [None]
  - SKIN HYPERTROPHY [None]
  - TENDERNESS [None]
